FAERS Safety Report 5062963-3 (Version None)
Quarter: 2006Q3

REPORT INFORMATION
  Report Type: 
  Country: None (occurrence: None)
  Receive Date: 20060724
  Receipt Date: 20060706
  Transmission Date: 20061208
  Serious: Yes (Hospitalization, Disabling, Other)
  Sender: FDA-Public Use
  Company Number: SP00793

PATIENT
  Age: 67 Year
  Sex: Female

DRUGS (8)
  1. VISICOL [Suspect]
     Indication: COLONOSCOPY
     Dosage: ??TAB/ONCE, ORAL
     Route: 048
  2. BENAZEPRIL (TABLETS) [Concomitant]
  3. HYDROCHLOROTHIAZIDE (TABLETS) [Concomitant]
  4. AMLODIPINE (TABLETS) [Concomitant]
  5. LIPITOR [Concomitant]
  6. GLIPIZIDE [Concomitant]
  7. METFORMIN HCL [Concomitant]
  8. ASPIRIN [Concomitant]

REACTIONS (6)
  - INTERCAPILLARY GLOMERULOSCLEROSIS [None]
  - KIDNEY FIBROSIS [None]
  - NEPHROCALCINOSIS [None]
  - RENAL ARTERIOSCLEROSIS [None]
  - RENAL FAILURE ACUTE [None]
  - RENAL TUBULAR ATROPHY [None]
